FAERS Safety Report 7379403-1 (Version None)
Quarter: 2011Q1

REPORT INFORMATION
  Report Type: 
  Country: None (occurrence: None)
  Receive Date: 20110329
  Receipt Date: 20110321
  Transmission Date: 20110831
  Serious: No
  Sender: FDA-Public Use
  Company Number: US-BIOGENIDEC-2011BI010747

PATIENT
  Age: 50 Year
  Sex: Female

DRUGS (3)
  1. NEURONTIN [Concomitant]
     Indication: MUSCLE SPASTICITY
  2. TYSABRI [Suspect]
     Indication: MULTIPLE SCLEROSIS
     Route: 042
     Dates: start: 20110317
  3. 4-AP [Concomitant]
     Indication: FATIGUE

REACTIONS (3)
  - TREMOR [None]
  - BALANCE DISORDER [None]
  - GAIT DISTURBANCE [None]
